FAERS Safety Report 10243163 (Version 1)
Quarter: 2014Q2

REPORT INFORMATION
  Report Type: Report from Study
  Country: GB (occurrence: GB)
  Receive Date: 20140618
  Receipt Date: 20140618
  Transmission Date: 20141212
  Serious: Yes (Hospitalization, Other)
  Sender: FDA-Public Use
  Company Number: GB-AMGEN INC.-GBRCT2014045197

PATIENT
  Age: 3 Year
  Sex: Female
  Weight: 10.8 kg

DRUGS (4)
  1. ETANERCEPT [Suspect]
     Indication: PRODUCT USED FOR UNKNOWN INDICATION
     Dosage: 4.25 MG, 2 TIMES/WK
     Route: 065
     Dates: start: 20080520
  2. METHOTREXATE [Concomitant]
     Dosage: UNK
     Dates: start: 20071003
  3. NAPROXEN [Concomitant]
     Dosage: UNK
  4. FOLIC ACID [Concomitant]
     Dosage: UNK

REACTIONS (1)
  - Varicella [Unknown]
